FAERS Safety Report 4691763-9 (Version None)
Quarter: 2005Q2

REPORT INFORMATION
  Report Type: 
  Country: None (occurrence: None)
  Receive Date: 20050616
  Receipt Date: 20050616
  Transmission Date: 20051028
  Serious: Yes (Disabling)
  Sender: FDA-Public Use
  Company Number: None

PATIENT
  Age: 42 Year
  Sex: Male
  Weight: 96.1626 kg

DRUGS (7)
  1. LEVAQUIN [Suspect]
     Indication: INFECTION
     Dosage: 500MG PER DAY ORAL
     Route: 048
     Dates: start: 20050609, end: 20050609
  2. LEVAQUIN [Suspect]
     Indication: RASH
     Dosage: 500MG PER DAY ORAL
     Route: 048
     Dates: start: 20050609, end: 20050609
  3. KEFLEX [Concomitant]
  4. DOXYCYCLINE [Concomitant]
  5. LEVAQUIN [Concomitant]
  6. NYSTATIN SWISH [Concomitant]
  7. XANAX [Concomitant]

REACTIONS (13)
  - ABDOMINAL SYMPTOM [None]
  - ABSCESS [None]
  - ANOREXIA [None]
  - ARTHRALGIA [None]
  - BURNING SENSATION [None]
  - FEELING COLD [None]
  - HYPOAESTHESIA [None]
  - INSOMNIA [None]
  - LOSS OF LIBIDO [None]
  - MUSCLE DISORDER [None]
  - ORAL FUNGAL INFECTION [None]
  - PARAESTHESIA [None]
  - TREMOR [None]
